FAERS Safety Report 7052679-6 (Version None)
Quarter: 2010Q4

REPORT INFORMATION
  Report Type: 
  Country: None (occurrence: None)
  Receive Date: 20101019
  Receipt Date: 20101012
  Transmission Date: 20110411
  Serious: Yes (Hospitalization, Other)
  Sender: FDA-Public Use
  Company Number: US-PFIZER INC-2010083029

PATIENT
  Sex: Male

DRUGS (4)
  1. CHANTIX [Suspect]
     Indication: SMOKING CESSATION THERAPY
     Dosage: STARTER PACK (0.5MG-1 MG)
     Dates: start: 20071101, end: 20080301
  2. EFFEXOR [Concomitant]
     Indication: DEPRESSION
     Dosage: UNK
     Dates: start: 20070101
  3. NIACIN [Concomitant]
     Indication: BLOOD PRESSURE
     Dosage: UNK
     Dates: start: 20070101
  4. WELLBUTRIN [Concomitant]
     Indication: DEPRESSION
     Dosage: UNK
     Dates: start: 20070101

REACTIONS (5)
  - ANXIETY [None]
  - DEPRESSION [None]
  - INTENTIONAL OVERDOSE [None]
  - NIGHTMARE [None]
  - SUICIDE ATTEMPT [None]
